FAERS Safety Report 24553698 (Version 1)
Quarter: 2024Q4

REPORT INFORMATION
  Report Type: Spontaneous
  Country: US (occurrence: US)
  Receive Date: 20241028
  Receipt Date: 20241028
  Transmission Date: 20250114
  Serious: No
  Sender: ROCHE
  Company Number: US-ROCHE-3571985

PATIENT
  Sex: Male

DRUGS (1)
  1. NUTROPIN AQ [Suspect]
     Active Substance: SOMATROPIN
     Indication: Cystinosis
     Dosage: NUSPIN 10MG/2ML PEN
     Route: 058
     Dates: start: 202403

REACTIONS (2)
  - Abdominal pain upper [Unknown]
  - Off label use [Unknown]
